FAERS Safety Report 4707044-0 (Version None)
Quarter: 2005Q3

REPORT INFORMATION
  Report Type: 
  Country: None (occurrence: None)
  Receive Date: 20050701
  Receipt Date: 20050615
  Transmission Date: 20060218
  Serious: Yes (Other)
  Sender: FDA-Public Use
  Company Number: DSA_26637_2005

PATIENT
  Age: 42 Year
  Sex: Male

DRUGS (5)
  1. ATIVAN [Suspect]
     Indication: ANGER
     Dosage: DF
  2. AMBIEN [Suspect]
     Indication: ANGER
     Dosage: DF
  3. PEG-INTRON [Suspect]
     Indication: HEPATITIS C
     Dosage: DF SC
     Route: 058
     Dates: start: 20041203, end: 20050408
  4. REBETOL [Suspect]
     Indication: HEPATITIS C
     Dosage: DF PO
     Route: 048
     Dates: start: 20041203, end: 20050401
  5. UNKNOWN [Concomitant]

REACTIONS (4)
  - AMNESIA [None]
  - ANGER [None]
  - DEPRESSED LEVEL OF CONSCIOUSNESS [None]
  - ROAD TRAFFIC ACCIDENT [None]
